FAERS Safety Report 4554056-6 (Version None)
Quarter: 2005Q1

REPORT INFORMATION
  Report Type: 
  Country: None (occurrence: None)
  Receive Date: 20050118
  Receipt Date: 20041105
  Transmission Date: 20050727
  Serious: No
  Sender: FDA-Public Use
  Company Number: DE-MERCK-0411DEU00098

PATIENT
  Age: 55 Year
  Sex: Female
  Weight: 69 kg

DRUGS (8)
  1. VIOXX [Suspect]
     Indication: BACK DISORDER
     Route: 048
  2. PREDNISOLONE [Concomitant]
     Route: 065
  3. BISOPROLOL [Concomitant]
     Route: 065
  4. RANITIDINE [Concomitant]
     Route: 065
  5. ASPIRIN [Concomitant]
     Route: 065
  6. CIMICIFUGA [Concomitant]
     Route: 065
  7. LEVOTHYROXINE SODIUM [Concomitant]
     Route: 065
  8. CALCIUM CARBONATE AND CHOLECALCIFEROL [Concomitant]
     Route: 065

REACTIONS (4)
  - CHEST PAIN [None]
  - DIZZINESS [None]
  - NERVOUSNESS [None]
  - VISUAL DISTURBANCE [None]
